FAERS Safety Report 19030485 (Version 1)
Quarter: 2021Q1

REPORT INFORMATION
  Report Type: Spontaneous
  Country: US (occurrence: US)
  Receive Date: 20210317
  Receipt Date: 20210317
  Transmission Date: 20210420
  Serious: Yes (Death)
  Sender: FDA-Public Use
  Company Number: None

PATIENT
  Age: 39 Year
  Sex: Male

DRUGS (5)
  1. METHYLPRED [Concomitant]
     Active Substance: METHYLPREDNISOLONE
  2. PREDNISONE. [Concomitant]
     Active Substance: PREDNISONE
  3. PHENYTOIN EX [Concomitant]
  4. VIMPAT [Concomitant]
     Active Substance: LACOSAMIDE
  5. TEMOZOLOMIDE 100MG CAP [Suspect]
     Active Substance: TEMOZOLOMIDE
     Indication: BRAIN NEOPLASM MALIGNANT
     Dosage: 4 CAPS (400MG) QD PO  T D IN A 28 D CYCLE
     Route: 048
     Dates: start: 20200602

REACTIONS (1)
  - Death [None]

NARRATIVE: CASE EVENT DATE: 20210310
